FAERS Safety Report 23426685 (Version 1)
Quarter: 2024Q1

REPORT INFORMATION
  Report Type: Spontaneous
  Country: US (occurrence: None)
  Receive Date: 20240122
  Receipt Date: 20240122
  Transmission Date: 20240410
  Serious: Yes (Other)
  Sender: FDA-Public Use
  Company Number: US-ROCHE-3492009

PATIENT
  Age: 32 Year
  Sex: Female

DRUGS (1)
  1. MOSUNETUZUMAB [Suspect]
     Active Substance: MOSUNETUZUMAB
     Indication: Follicular lymphoma
     Route: 042

REACTIONS (3)
  - Rash maculo-papular [Unknown]
  - Orbital oedema [Unknown]
  - Diarrhoea [Unknown]
